FAERS Safety Report 24221428 (Version 1)
Quarter: 2024Q3

REPORT INFORMATION
  Report Type: Spontaneous
  Country: US (occurrence: US)
  Receive Date: 20240819
  Receipt Date: 20240819
  Transmission Date: 20241017
  Serious: No
  Sender: AMGEN
  Company Number: US-AMGEN-USASP2024161450

PATIENT
  Age: 66 Year
  Sex: Female

DRUGS (2)
  1. REPATHA [Suspect]
     Active Substance: EVOLOCUMAB
     Indication: Blood cholesterol abnormal
     Dosage: UNK UNK, QMO
     Route: 058
  2. NEXLETOL [Concomitant]
     Active Substance: BEMPEDOIC ACID

REACTIONS (2)
  - Inappropriate schedule of product administration [Unknown]
  - Oedema [Not Recovered/Not Resolved]
